FAERS Safety Report 5777312-2 (Version None)
Quarter: 2008Q2

REPORT INFORMATION
  Report Type: 
  Country: None (occurrence: None)
  Receive Date: 20080618
  Receipt Date: 20080609
  Transmission Date: 20081010
  Serious: Yes (Disabling)
  Sender: FDA-Public Use
  Company Number: DE-BRISTOL-MYERS SQUIBB COMPANY-14187025

PATIENT
  Age: 55 Year
  Sex: Female

DRUGS (1)
  1. MITOMYCIN [Suspect]
     Indication: BLADDER CANCER
     Dosage: OCT07TOJAN08 WEEKLY,JAN08 EVERY FOUR WEEKSINTRAVESICAL INSTILLATIONS,LASTON 28-FEB08OR ON 29FEB08.
     Route: 040
     Dates: start: 20071001, end: 20080101

REACTIONS (2)
  - BONE PAIN [None]
  - RASH [None]
